FAERS Safety Report 9360556 (Version 1)
Quarter: 2013Q2

REPORT INFORMATION
  Report Type: Spontaneous
  Country: US (occurrence: None)
  Receive Date: 20130620
  Receipt Date: 20130620
  Transmission Date: 20140414
  Serious: Yes (Other)
  Sender: FDA-Public Use
  Company Number: None

PATIENT
  Age: 54 Year
  Sex: Male
  Weight: 86.18 kg

DRUGS (1)
  1. PAROXETINE [Suspect]
     Indication: MAJOR DEPRESSION

REACTIONS (4)
  - Depression [None]
  - Sedation [None]
  - Weight decreased [None]
  - Product substitution issue [None]
